FAERS Safety Report 5166737-4 (Version None)
Quarter: 2006Q4

REPORT INFORMATION
  Report Type: 
  Country: None (occurrence: None)
  Receive Date: 20061204
  Receipt Date: 20061204
  Transmission Date: 20070319
  Serious: Yes (Life-Threatening, Hospitalization)
  Sender: FDA-Public Use
  Company Number: None

PATIENT
  Age: 57 Year
  Sex: Female
  Weight: 68.9467 kg

DRUGS (1)
  1. DOXYCYCLINE [Suspect]
     Indication: ARTHROPOD BITE
     Dosage: 100 MG BLUE CAPSULES TWICE A DAY PO
     Route: 048
     Dates: start: 20061024, end: 20061106

REACTIONS (9)
  - ANOREXIA [None]
  - BLOOD ELECTROLYTES ABNORMAL [None]
  - CONFUSIONAL STATE [None]
  - CONVULSION [None]
  - DRUG INTERACTION [None]
  - DYSURIA [None]
  - HYPONATRAEMIA [None]
  - PARTIAL SEIZURES [None]
  - URINARY RETENTION [None]
